FAERS Safety Report 4516515-1 (Version None)
Quarter: 2004Q4

REPORT INFORMATION
  Report Type: 
  Country: None (occurrence: None)
  Receive Date: 20041027
  Receipt Date: 20040723
  Transmission Date: 20050328
  Serious: No
  Sender: FDA-Public Use
  Company Number: US084684

PATIENT
  Sex: 0

DRUGS (1)
  1. SENSIPAR [Suspect]
     Indication: HYPERPARATHYROIDISM SECONDARY
     Dates: start: 20040101, end: 20040101

REACTIONS (3)
  - DEPRESSION [None]
  - HYPOCALCAEMIA [None]
  - SUICIDAL IDEATION [None]
